FAERS Safety Report 13524161 (Version 1)
Quarter: 2017Q2

REPORT INFORMATION
  Report Type: Spontaneous
  Country: IN (occurrence: IN)
  Receive Date: 20170508
  Receipt Date: 20170508
  Transmission Date: 20170830
  Serious: Yes (Other)
  Sender: FDA-Public Use
  Company Number: IN-APOPHARMA USA, INC.-2017AP011615

PATIENT
  Age: 32 Month
  Sex: Male

DRUGS (3)
  1. TOPOTECAN [Concomitant]
     Active Substance: TOPOTECAN HYDROCHLORIDE
     Indication: RETINOBLASTOMA
     Dosage: 1 MG, OTHER
     Route: 013
  2. ALKERAN [Suspect]
     Active Substance: MELPHALAN
     Indication: RETINOBLASTOMA
     Dosage: 7.5 MG, OTHER
     Route: 013
  3. HEPARIN [Concomitant]
     Active Substance: HEPARIN SODIUM
     Indication: ANTICOAGULANT THERAPY
     Dosage: 75 IU/KG, OTHER
     Route: 042

REACTIONS (1)
  - Vitreous haemorrhage [Recovered/Resolved]
